FAERS Safety Report 21974973 (Version 2)
Quarter: 2023Q2

REPORT INFORMATION
  Report Type: Spontaneous
  Country: GB (occurrence: GB)
  Receive Date: 20230209
  Receipt Date: 20230405
  Transmission Date: 20230722
  Serious: Yes (Hospitalization, Other)
  Sender: FDA-Public Use
  Company Number: GB-BAYER-2023A015898

PATIENT
  Age: 89 Year
  Sex: Male

DRUGS (12)
  1. XARELTO [Suspect]
     Active Substance: RIVAROXABAN
     Indication: Atrial fibrillation
     Dosage: 15 MG, QD
     Route: 048
     Dates: end: 20220805
  2. XARELTO [Suspect]
     Active Substance: RIVAROXABAN
     Indication: Atrial fibrillation
     Dosage: 15 MG, QD
     Route: 048
     Dates: start: 20220817
  3. FUROSEMIDE [Suspect]
     Active Substance: FUROSEMIDE
     Indication: Amyloidosis senile
     Dosage: 20 MG, QD
     Route: 048
     Dates: start: 20210428
  4. DIGOXIN [Suspect]
     Active Substance: DIGOXIN
     Indication: Atrial fibrillation
     Dosage: 62.5 UG, QD
     Route: 048
     Dates: start: 202201
  5. BISOPROLOL [Concomitant]
     Active Substance: BISOPROLOL
     Indication: Atrial fibrillation
     Dosage: 2.5 MG, QD
     Route: 048
     Dates: start: 20201007
  6. LOPERAMIDE [Concomitant]
     Active Substance: LOPERAMIDE
     Indication: Gastrointestinal disorder
     Dosage: 2 MG, PRN
     Route: 048
     Dates: start: 202106
  7. DICLOFENAC DIETHYLAMINE [Concomitant]
     Active Substance: DICLOFENAC DIETHYLAMINE
     Indication: Back pain
     Dosage: 1 DF, PRN
     Route: 061
     Dates: start: 2022
  8. BECLOMETHASONE\FORMOTEROL [Concomitant]
     Active Substance: BECLOMETHASONE\FORMOTEROL
     Indication: Asthma
     Dosage: 100 UG, BID
     Route: 055
     Dates: start: 202003
  9. BIMATOPROST [Concomitant]
     Active Substance: BIMATOPROST
     Indication: Glaucoma
     Dosage: 0.1 MG, QD
     Route: 061
     Dates: start: 2000
  10. BRIMONIDINE [Concomitant]
     Active Substance: BRIMONIDINE TARTRATE
     Indication: Glaucoma
     Dosage: 0.2 %, BID
     Route: 061
     Dates: start: 2000
  11. HYPROMELLOSES [Concomitant]
     Active Substance: HYPROMELLOSES
     Indication: Lacrimal cyst
     Dosage: 1 DF, QID
     Route: 047
     Dates: start: 20210723
  12. OPTASE DRY EYE [Concomitant]
     Indication: Lacrimal cyst
     Dosage: 1 DF, BID
     Route: 047
     Dates: start: 20210723

REACTIONS (8)
  - Immune thrombocytopenia [Recovered/Resolved with Sequelae]
  - Haemorrhagic diathesis [Unknown]
  - Contusion [Unknown]
  - Mouth haemorrhage [Unknown]
  - Platelet count decreased [Recovered/Resolved]
  - Epistaxis [Unknown]
  - Oral mucosal blistering [Unknown]
  - Anaemia [Unknown]

NARRATIVE: CASE EVENT DATE: 20210801
